FAERS Safety Report 23648475 (Version 1)
Quarter: 2024Q1

REPORT INFORMATION
  Report Type: Spontaneous
  Country: GB (occurrence: GB)
  Receive Date: 20240319
  Receipt Date: 20240319
  Transmission Date: 20240410
  Serious: Yes (Other)
  Sender: FDA-Public Use
  Company Number: None

PATIENT
  Age: 76 Year
  Sex: Female

DRUGS (8)
  1. DOXYCYCLINE [Suspect]
     Active Substance: DOXYCYCLINE
     Dosage: TWO NOW THEN
     Dates: start: 20240229
  2. AMOXICILLIN [Concomitant]
     Active Substance: AMOXICILLIN
     Dosage: 1 DF, 3X/DAY
     Dates: start: 20240304, end: 20240311
  3. BECLOMETHASONE DIPROPIONATE [Concomitant]
     Active Substance: BECLOMETHASONE DIPROPIONATE
     Dosage: 2 DF, 2X/DAY
     Dates: start: 20240314
  4. GABAPENTIN [Concomitant]
     Active Substance: GABAPENTIN
     Dosage: 1 DF, 3X/DAY
     Dates: start: 20180525
  5. HYDROXOCOBALAMIN [Concomitant]
     Active Substance: HYDROXOCOBALAMIN
     Dosage: 1 DF, EVERY 3 MONTHS
     Route: 030
     Dates: start: 20231229
  6. LEVOTHYROXINE [Concomitant]
     Active Substance: LEVOTHYROXINE\LEVOTHYROXINE SODIUM
     Dosage: 1 DF, 1X/DAY EACH MORNING
     Dates: start: 20180525
  7. MIRTAZAPINE [Concomitant]
     Active Substance: MIRTAZAPINE
     Dosage: 1 DF, 1X/DAY
     Dates: start: 20180525
  8. ALBUTEROL [Concomitant]
     Active Substance: ALBUTEROL
     Dosage: 2 DF, AS NEEDED
     Route: 055
     Dates: start: 20240304

REACTIONS (1)
  - Jaundice [Recovered/Resolved]
